FAERS Safety Report 6978226-2 (Version None)
Quarter: 2010Q3

REPORT INFORMATION
  Report Type: 
  Country: None (occurrence: None)
  Receive Date: 20100913
  Receipt Date: 20100902
  Transmission Date: 20110219
  Serious: Yes (Death, Hospitalization, Other)
  Sender: FDA-Public Use
  Company Number: IT-BAYER-201028063GPV

PATIENT
  Age: 83 Year
  Sex: Male
  Weight: 86 kg

DRUGS (9)
  1. SORAFENIB [Suspect]
     Indication: HEPATIC NEOPLASM MALIGNANT
     Dosage: TOTAL DAILY DOSE: 800 MG  UNIT DOSE: 200 MG
     Route: 048
     Dates: start: 20100212, end: 20100227
  2. SORAFENIB [Suspect]
     Dosage: TOTAL DAILY DOSE: 400 MG  UNIT DOSE: 200 MG
     Route: 048
     Dates: start: 20100312, end: 20100407
  3. SORAFENIB [Suspect]
     Dosage: TOTAL DAILY DOSE: 400 MG  UNIT DOSE: 200 MG
     Route: 048
     Dates: start: 20100507, end: 20100523
  4. SORAFENIB [Suspect]
     Dosage: TOTAL DAILY DOSE: 400 MG  UNIT DOSE: 200 MG
     Route: 048
     Dates: start: 20100228, end: 20100311
  5. SORAFENIB [Suspect]
     Dosage: TOTAL DAILY DOSE: 400 MG  UNIT DOSE: 200 MG
     Route: 048
     Dates: start: 20100408, end: 20100506
  6. DOXORUBICIN HCL [Suspect]
     Indication: HEPATIC NEOPLASM MALIGNANT
  7. SPIRONOLACTONE [Concomitant]
     Indication: ASCITES
     Dates: start: 20100528, end: 20100605
  8. CEPHALOSPORIN [Concomitant]
     Indication: INFECTION
     Dates: start: 20100602, end: 20100605
  9. LACTULOSE [Concomitant]
     Indication: ENCEPHALOPATHY
     Dosage: 2 SPOONS
     Route: 048
     Dates: start: 20100602, end: 20100605

REACTIONS (2)
  - ASCITES [None]
  - HEPATORENAL SYNDROME [None]
